FAERS Safety Report 4959184-9 (Version None)
Quarter: 2006Q1

REPORT INFORMATION
  Report Type: 
  Country: None (occurrence: None)
  Receive Date: 20060330
  Receipt Date: 20060330
  Transmission Date: 20060701
  Serious: Yes (Hospitalization, Disabling)
  Sender: FDA-Public Use
  Company Number: None

PATIENT
  Age: 73 Year
  Sex: Female
  Weight: 65.7716 kg

DRUGS (1)
  1. GLYBURIDE [Suspect]
     Indication: DIABETES MELLITUS NON-INSULIN-DEPENDENT
     Dosage: 2.5 MG ONCE DAILY PO
     Route: 048
     Dates: start: 20060203, end: 20060321

REACTIONS (4)
  - DRUG CLEARANCE DECREASED [None]
  - DRUG EFFECT PROLONGED [None]
  - HYPOGLYCAEMIA [None]
  - PYELONEPHRITIS [None]
